FAERS Safety Report 4803645-X (Version None)
Quarter: 2005Q4

REPORT INFORMATION
  Report Type: 
  Country: None (occurrence: None)
  Receive Date: 20051014
  Receipt Date: 20051007
  Transmission Date: 20060501
  Serious: Yes (Other)
  Sender: FDA-Public Use
  Company Number: 200510639BNE

PATIENT
  Sex: Male

DRUGS (1)
  1. CIPROFLOXACIN [Suspect]
     Indication: PROSTATITIS
     Dosage: 250 MG, BID

REACTIONS (1)
  - BLOOD CREATINE PHOSPHOKINASE INCREASED [None]
